FAERS Safety Report 5403559-0 (Version None)
Quarter: 2007Q3

REPORT INFORMATION
  Report Type: 
  Country: None (occurrence: None)
  Receive Date: 20070730
  Receipt Date: 20070712
  Transmission Date: 20080115
  Serious: Yes (Other)
  Sender: FDA-Public Use
  Company Number: 8025510

PATIENT
  Age: 9 Year
  Sex: Male
  Weight: 40.5 kg

DRUGS (1)
  1. EQUASYM [Suspect]
     Indication: ATTENTION DEFICIT/HYPERACTIVITY DISORDER
     Dosage: 20 MG/D
     Dates: start: 20070106

REACTIONS (1)
  - NO ADVERSE DRUG REACTION [None]
